FAERS Safety Report 13940537 (Version 3)
Quarter: 2017Q4

REPORT INFORMATION
  Report Type: Report from Study
  Country: BR (occurrence: BR)
  Receive Date: 20170906
  Receipt Date: 20171121
  Transmission Date: 20180320
  Serious: Yes (Other)
  Sender: FDA-Public Use
  Company Number: BR-AMGEN-BRANI2017107714

PATIENT
  Age: 11 Year
  Sex: Male

DRUGS (3)
  1. DIPHENHYDRAMINE. [Concomitant]
     Active Substance: DIPHENHYDRAMINE
     Dosage: 1 MG/KG, Q8H
     Route: 042
     Dates: start: 20170712
  2. BLINATUMOMAB [Suspect]
     Active Substance: BLINATUMOMAB
     Indication: ACUTE LYMPHOCYTIC LEUKAEMIA
     Dosage: 5 MUG/M2, CONTINUING
     Route: 042
     Dates: start: 20170712, end: 20170809
  3. DIPYRONE [Concomitant]
     Active Substance: DIPYRONE
     Indication: PYREXIA
     Dosage: 25 MG/KG, Q6H
     Route: 042
     Dates: start: 20170712

REACTIONS (3)
  - Eczema [Recovered/Resolved]
  - Oedema peripheral [Recovered/Resolved]
  - Cytokine release syndrome [Recovered/Resolved]

NARRATIVE: CASE EVENT DATE: 20170712
